FAERS Safety Report 16726873 (Version 1)
Quarter: 2019Q3

REPORT INFORMATION
  Report Type: Spontaneous
  Country: US (occurrence: US)
  Receive Date: 20190821
  Receipt Date: 20190821
  Transmission Date: 20191005
  Serious: Yes (Hospitalization)
  Sender: FDA-Public Use
  Company Number: US-RIGEL PHARMACEUTICALS, INC.-2019FOS000401

PATIENT
  Age: 38 Year
  Sex: Female

DRUGS (1)
  1. TAVALISSE [Suspect]
     Active Substance: FOSTAMATINIB
     Indication: THROMBOCYTOPENIA
     Dosage: 150 MG, QD
     Route: 048

REACTIONS (2)
  - Hospitalisation [Unknown]
  - Off label use [Unknown]

NARRATIVE: CASE EVENT DATE: 20190812
